FAERS Safety Report 8261284-5 (Version None)
Quarter: 2012Q2

REPORT INFORMATION
  Report Type: 
  Country: None (occurrence: None)
  Receive Date: 20120405
  Receipt Date: 20120328
  Transmission Date: 20120825
  Serious: Yes (Hospitalization)
  Sender: FDA-Public Use
  Company Number: US-BAYER-2011-055192

PATIENT
  Age: 25 Year
  Sex: Female

DRUGS (7)
  1. DOCUSATE [Concomitant]
  2. YAZ [Suspect]
  3. PERCOCET [Concomitant]
  4. COMPAZINE [Concomitant]
  5. KETOROLAC TROMETHAMINE [Concomitant]
     Indication: PAIN
  6. YASMIN [Suspect]
     Indication: CONTRACEPTION
     Dosage: UNK
     Dates: start: 20080601, end: 20090601
  7. NEXIUM [Concomitant]

REACTIONS (3)
  - PULMONARY INFARCTION [None]
  - PAIN [None]
  - PULMONARY EMBOLISM [None]
